FAERS Safety Report 9645334 (Version 4)
Quarter: 2014Q3

REPORT INFORMATION
  Report Type: Spontaneous
  Country: US (occurrence: None)
  Receive Date: 20131023
  Receipt Date: 20140801
  Transmission Date: 20150326
  Serious: Yes (Death)
  Sender: FDA-Public Use
  Company Number: UTC-039287

PATIENT
  Age: 52 Year
  Sex: Female
  Weight: 80 kg

DRUGS (3)
  1. REMODULIN [Suspect]
     Active Substance: TREPROSTINIL
     Indication: COR PULMONALE CHRONIC
     Dosage: 0.1 UG/KG/MIN, CONTINUING, SUBCUTANEOUS?
     Route: 058
     Dates: start: 20100428
  2. LETAIRIS [Concomitant]
     Active Substance: AMBRISENTAN
  3. REVATIO (SILDENAFIL CITRATE) [Concomitant]

REACTIONS (3)
  - Scleroderma [None]
  - Pulmonary arterial hypertension [None]
  - Death [None]

NARRATIVE: CASE EVENT DATE: 201309
